FAERS Safety Report 5403587-5 (Version None)
Quarter: 2007Q3

REPORT INFORMATION
  Report Type: 
  Country: None (occurrence: None)
  Receive Date: 20070802
  Receipt Date: 20070730
  Transmission Date: 20080115
  Serious: Yes (Other)
  Sender: FDA-Public Use
  Company Number: PHEH2007US10213

PATIENT
  Age: 77 Year
  Sex: Male
  Weight: 80.725 kg

DRUGS (18)
  1. ZOMETA [Suspect]
     Indication: METASTASES TO BONE
     Dosage: 4 MG Q3W
     Route: 042
     Dates: start: 20040418, end: 20050104
  2. ZOMETA [Suspect]
     Dosage: 4 MG, ONCE/SINGLE
     Route: 042
     Dates: start: 20050615, end: 20060615
  3. BENADRYL [Concomitant]
  4. DECADRON [Concomitant]
  5. ZANTAC 150 [Concomitant]
  6. ZOFRAN [Concomitant]
  7. TAXOL [Concomitant]
  8. CARBOPLATIN [Concomitant]
  9. PROCRIT [Concomitant]
  10. LEUKINE [Concomitant]
  11. KYTRIL [Concomitant]
  12. ROCEPHIN [Concomitant]
  13. ALIMTA [Concomitant]
  14. ALOXI [Concomitant]
  15. GEMZAR [Concomitant]
  16. CISPLATIN [Concomitant]
  17. AVASTIN [Concomitant]
  18. TARCEVA [Concomitant]

REACTIONS (4)
  - MOUTH ULCERATION [None]
  - ORAL PAIN [None]
  - OSTEONECROSIS [None]
  - STOMATITIS [None]
